FAERS Safety Report 9202409 (Version 1)
Quarter: 2013Q2

REPORT INFORMATION
  Report Type: Spontaneous
  Country: US (occurrence: US)
  Receive Date: 20130401
  Receipt Date: 20130401
  Transmission Date: 20140414
  Serious: Yes (Other)
  Sender: FDA-Public Use
  Company Number: US-UCBSA-081527

PATIENT
  Age: 60 Year
  Sex: Female

DRUGS (4)
  1. CIMZIA [Suspect]
     Indication: CROHN^S DISEASE
     Dosage: UNKNOWN DOSE
  2. AZA [Concomitant]
     Indication: CROHN^S DISEASE
     Dosage: UNKNOWN DOSE
  3. BUDESONIDE [Concomitant]
     Indication: CROHN^S DISEASE
     Dosage: UNKNOWN DOSE
  4. 6-MP [Concomitant]
     Indication: CROHN^S DISEASE
     Dosage: UNKNOWN DOSE

REACTIONS (2)
  - Suicidal ideation [Unknown]
  - Depression [Unknown]
